FAERS Safety Report 5609189-X (Version None)
Quarter: 2008Q1

REPORT INFORMATION
  Report Type: 
  Country: None (occurrence: None)
  Receive Date: 20080131
  Receipt Date: 20080124
  Transmission Date: 20080703
  Serious: Yes (Other)
  Sender: FDA-Public Use
  Company Number: CA-ABBOTT-08P-028-0435196-00

PATIENT
  Sex: Male
  Weight: 86 kg

DRUGS (6)
  1. HUMIRA [Suspect]
     Indication: PSORIATIC ARTHROPATHY
     Dates: start: 20060127, end: 20080108
  2. GLUCOSAMINE [Concomitant]
     Indication: NUTRITIONAL SUPPORT
     Dates: start: 20051001
  3. GLUCOSAMINE [Concomitant]
     Dates: start: 20051001
  4. PARACETAMOL [Concomitant]
     Indication: ARTHRALGIA
     Dates: start: 20050301
  5. VITALUX [Concomitant]
     Indication: MACULAR DEGENERATION
     Dates: start: 20060801
  6. SNELUIT [Concomitant]
     Indication: MACULAR DEGENERATION
     Dates: start: 20070223

REACTIONS (1)
  - SQUAMOUS CELL CARCINOMA [None]
